FAERS Safety Report 4363010-9 (Version None)
Quarter: 2004Q2

REPORT INFORMATION
  Report Type: 
  Country: None (occurrence: None)
  Receive Date: 20040518
  Receipt Date: 20040507
  Transmission Date: 20050107
  Serious: Yes (Hospitalization)
  Sender: FDA-Public Use
  Company Number: 04P-155-0259330-00

PATIENT
  Age: 31 Year
  Sex: Male
  Weight: 61 kg

DRUGS (7)
  1. NORVIR [Suspect]
     Indication: HIV INFECTION
     Dosage: ORAL
     Route: 048
  2. SAQUINAVIR [Suspect]
  3. PRAZIQUANTEL [Concomitant]
  4. NEUROBION FOR INJECTION [Concomitant]
  5. LORAZEPAM [Concomitant]
  6. TENOFOVIR [Concomitant]
  7. LAMIVUDINE [Concomitant]

REACTIONS (9)
  - ACTIVATED PARTIAL THROMBOPLASTIN TIME PROLONGED [None]
  - ARTERIAL STENOSIS LIMB [None]
  - BLOOD CREATINE PHOSPHOKINASE INCREASED [None]
  - HYPOAESTHESIA [None]
  - MYALGIA [None]
  - PAIN IN EXTREMITY [None]
  - PERIPHERAL ISCHAEMIA [None]
  - PULSE ABSENT [None]
  - PYREXIA [None]
